FAERS Safety Report 11652680 (Version 2)
Quarter: 2015Q4

REPORT INFORMATION
  Report Type: Spontaneous
  Country: JP (occurrence: JP)
  Receive Date: 20151022
  Receipt Date: 20151208
  Transmission Date: 20160304
  Serious: Yes (Life-Threatening, Congenital Anomaly, Other)
  Sender: FDA-Public Use
  Company Number: JP-ASTRAZENECA-2015SF01971

PATIENT
  Sex: Female

DRUGS (4)
  1. SEROQUEL [Suspect]
     Active Substance: QUETIAPINE FUMARATE
     Indication: FOETAL EXPOSURE DURING PREGNANCY
     Dosage: 25-50 MG, ONCE DAILY
     Route: 064
     Dates: start: 20110711, end: 20151003
  2. LEXAPRO [Suspect]
     Active Substance: ESCITALOPRAM OXALATE
     Route: 064
     Dates: start: 20140919, end: 20150313
  3. UTEMERIN [Suspect]
     Active Substance: RITODRINE
     Route: 064
     Dates: start: 20150722
  4. SELBEX [Suspect]
     Active Substance: TEPRENONE
     Route: 064
     Dates: start: 20150824, end: 20150907

REACTIONS (5)
  - Neonatal asphyxia [Recovering/Resolving]
  - Apnoea neonatal [Recovering/Resolving]
  - Dyspnoea [Unknown]
  - Drug withdrawal syndrome neonatal [Unknown]
  - Transient tachypnoea of the newborn [Recovering/Resolving]
